FAERS Safety Report 9270295 (Version 2)
Quarter: 2013Q2

REPORT INFORMATION
  Report Type: Spontaneous
  Country: US (occurrence: US)
  Receive Date: 20130503
  Receipt Date: 20130523
  Transmission Date: 20140414
  Serious: Yes (Hospitalization, Other)
  Sender: FDA-Public Use
  Company Number: US-AMGEN-USASP2013029763

PATIENT
  Age: 73 Year
  Sex: Female
  Weight: 60 kg

DRUGS (24)
  1. NPLATE [Suspect]
     Indication: IDIOPATHIC THROMBOCYTOPENIC PURPURA
     Dosage: 5 MUG, QWK
     Route: 058
     Dates: start: 20111201
  2. PREDNISONE [Concomitant]
  3. PROCRIT [Concomitant]
     Dosage: UNK UNK, AS NECESSARY
  4. LASIX                              /00032601/ [Concomitant]
  5. MAGNESIUM [Concomitant]
  6. CYTOXAN [Concomitant]
  7. IMMUNOGLOBULIN I.V [Concomitant]
     Dosage: UNK
     Dates: start: 201211, end: 201303
  8. PEPCID                             /00706001/ [Concomitant]
     Dosage: 20 MG, UNK
     Route: 048
  9. GLYBURIDE (MICRONIZED) [Concomitant]
     Dosage: 5 MG, UNK
  10. METFORMIN [Concomitant]
     Dosage: 500 MG, UNK
  11. AUGMENTIN                          /00756801/ [Concomitant]
     Dosage: 125 MG, UNK
  12. SEPTRA DS [Concomitant]
     Dosage: 160 MG, UNK
     Route: 048
  13. MEGACE [Concomitant]
     Dosage: 400 MG, UNK
     Route: 048
  14. FERROUS SULFATE [Concomitant]
     Dosage: 325 MG, UNK
     Route: 048
  15. FUROSEMIDE [Concomitant]
     Dosage: 20 MG, UNK
     Route: 048
  16. PROCHLORPERAZINE MALEATE [Concomitant]
     Dosage: 10 MG, UNK
     Route: 048
  17. ZOFRAN                             /00955301/ [Concomitant]
     Dosage: 8 MG, UNK
  18. LEVAQUIN [Concomitant]
     Dosage: 500 MG, UNK
     Route: 048
  19. DOCQLACE [Concomitant]
     Dosage: 100 MG, UNK
     Route: 048
  20. VALSARTAN [Concomitant]
     Dosage: 40 MG, UNK
     Route: 048
  21. CARVEDILOL [Concomitant]
  22. VORICONAZOLE [Concomitant]
     Dosage: 200 MG, UNK
     Route: 048
  23. LANTUS [Concomitant]
  24. ONGLYZA [Concomitant]

REACTIONS (15)
  - Bronchopulmonary aspergillosis [Unknown]
  - Bacteraemia [Unknown]
  - Urinary tract infection [Unknown]
  - Splenectomy [Unknown]
  - Drug effect decreased [Unknown]
  - Depression [Recovering/Resolving]
  - Platelet count abnormal [Unknown]
  - White blood cell count abnormal [Unknown]
  - Cough [Unknown]
  - Dyspnoea exertional [Unknown]
  - Joint swelling [Unknown]
  - Local swelling [Unknown]
  - Muscular weakness [Unknown]
  - Contusion [Unknown]
  - Wheelchair user [Unknown]
